FAERS Safety Report 20417964 (Version 2)
Quarter: 2022Q1

REPORT INFORMATION
  Report Type: Spontaneous
  Country: US (occurrence: US)
  Receive Date: 20220202
  Receipt Date: 20220228
  Transmission Date: 20220423
  Serious: Yes (Death)
  Sender: FDA-Public Use
  Company Number: US-COHERUS BIOSCIENCES, INC - 2022-COH-US000001

PATIENT

DRUGS (3)
  1. UDENYCA [Suspect]
     Active Substance: PEGFILGRASTIM-CBQV
     Indication: Product used for unknown indication
     Dosage: 6 MG, SINGLE
     Route: 058
     Dates: start: 20200911, end: 20200911
  2. UDENYCA [Suspect]
     Active Substance: PEGFILGRASTIM-CBQV
     Dosage: 6 MG, SINGLE
     Route: 058
     Dates: start: 20200925, end: 20200925
  3. UDENYCA [Suspect]
     Active Substance: PEGFILGRASTIM-CBQV
     Dosage: 6 MG, SINGLE
     Route: 058
     Dates: start: 20201015, end: 20201015

REACTIONS (1)
  - Death [Fatal]

NARRATIVE: CASE EVENT DATE: 20210205
